FAERS Safety Report 5075787-8 (Version None)
Quarter: 2006Q3

REPORT INFORMATION
  Report Type: 
  Country: None (occurrence: None)
  Receive Date: 20060809
  Receipt Date: 20060331
  Transmission Date: 20061208
  Serious: Yes (Other)
  Sender: FDA-Public Use
  Company Number: BR-GLAXOSMITHKLINE-A0600830A

PATIENT
  Age: 8 Year
  Sex: Male
  Weight: 27 kg

DRUGS (4)
  1. AEROLIN [Suspect]
     Indication: ASTHMA
     Dates: start: 20001001, end: 20050301
  2. PREDNISOLONE [Concomitant]
     Dates: start: 20001001, end: 20050301
  3. AZITHROMYCIN [Concomitant]
  4. CARBOCISTEINE [Concomitant]

REACTIONS (4)
  - ASTHENIA [None]
  - ASTHMATIC CRISIS [None]
  - PALPITATIONS [None]
  - PYREXIA [None]
